FAERS Safety Report 6465839-X (Version None)
Quarter: 2009Q4

REPORT INFORMATION
  Report Type: 
  Country: None (occurrence: None)
  Receive Date: 20091127
  Receipt Date: 20091113
  Transmission Date: 20100525
  Serious: Yes (Hospitalization, Other)
  Sender: FDA-Public Use
  Company Number: 001411

PATIENT
  Sex: Female
  Weight: 68.4024 kg

DRUGS (7)
  1. LACOSAMIDE [Suspect]
     Indication: EPILEPSY
     Dosage: (250 MG BID ORAL)
     Route: 048
     Dates: start: 20090205
  2. TOPAMAX [Concomitant]
  3. MULTI-VITAMINS [Concomitant]
  4. FOLIC ACID [Concomitant]
  5. CALCIUM WITH VITAMIN D [Concomitant]
  6. IBUPROFEN [Concomitant]
  7. GLUCOSAMINE [Concomitant]

REACTIONS (7)
  - BLOOD PROLACTIN INCREASED [None]
  - ENCEPHALOMALACIA [None]
  - GRAND MAL CONVULSION [None]
  - HOMICIDAL IDEATION [None]
  - PARANOIA [None]
  - SPINAL OSTEOARTHRITIS [None]
  - TREATMENT NONCOMPLIANCE [None]
